FAERS Safety Report 12826586 (Version 1)
Quarter: 2016Q4

REPORT INFORMATION
  Report Type: Spontaneous
  Country: US (occurrence: US)
  Receive Date: 20161007
  Receipt Date: 20161007
  Transmission Date: 20170207
  Serious: No
  Sender: FDA-Public Use
  Company Number: US-WATSON-2016-05498

PATIENT
  Age: 58 Year
  Sex: Male

DRUGS (2)
  1. FENTANYL-75 (WATSON LABORATORIES) [Suspect]
     Active Substance: FENTANYL
     Indication: PAIN
     Dosage: 75 MCG/HR, 1 PATCH APPLIED EVERY 3 DAYS
     Route: 062
     Dates: start: 20160224
  2. FENTANYL-75 (WATSON LABORATORIES) [Suspect]
     Active Substance: FENTANYL
     Indication: NERVE INJURY

REACTIONS (3)
  - Unevaluable event [Not Recovered/Not Resolved]
  - Drug dose omission [Not Recovered/Not Resolved]
  - Malaise [Not Recovered/Not Resolved]

NARRATIVE: CASE EVENT DATE: 20160306
